FAERS Safety Report 11555347 (Version 1)
Quarter: 2015Q3

REPORT INFORMATION
  Report Type: Spontaneous
  Country: CN (occurrence: CN)
  Receive Date: 20150925
  Receipt Date: 20150925
  Transmission Date: 20151125
  Serious: Yes (Hospitalization)
  Sender: FDA-Public Use
  Company Number: CN-ABBVIE-15P-035-1470435-00

PATIENT
  Age: 1 Year

DRUGS (2)
  1. MEROPENEM. [Interacting]
     Active Substance: MEROPENEM
     Indication: INFECTION
     Route: 065
  2. VALPROIC ACID. [Suspect]
     Active Substance: VALPROIC ACID
     Indication: EPILEPSY
     Route: 065

REACTIONS (6)
  - Drug level decreased [Unknown]
  - Hypertonia [Unknown]
  - Drug interaction [Unknown]
  - Gaze palsy [Unknown]
  - Tremor [Unknown]
  - Epilepsy [Unknown]
